FAERS Safety Report 11550182 (Version 1)
Quarter: 2015Q3

REPORT INFORMATION
  Report Type: Spontaneous
  Country: US (occurrence: US)
  Receive Date: 20150924
  Receipt Date: 20150924
  Transmission Date: 20151125
  Serious: Yes (Other)
  Sender: FDA-Public Use
  Company Number: US-TAKEDA-2015TUS013016

PATIENT
  Age: 60 Year
  Sex: Female

DRUGS (4)
  1. BRINTELLIX [Suspect]
     Active Substance: VORTIOXETINE HYDROBROMIDE
     Indication: MAJOR DEPRESSION
     Dosage: 5 MG, QD
     Route: 048
  2. BRINTELLIX [Interacting]
     Active Substance: VORTIOXETINE HYDROBROMIDE
     Dosage: 20 MG, QD
     Route: 048
  3. ABILIFY [Interacting]
     Active Substance: ARIPIPRAZOLE
     Indication: MAJOR DEPRESSION
     Dosage: UNK
  4. BRINTELLIX [Interacting]
     Active Substance: VORTIOXETINE HYDROBROMIDE
     Dosage: 10 MG, QD
     Route: 048

REACTIONS (2)
  - Seizure [Recovered/Resolved]
  - Labelled drug-drug interaction medication error [Not Recovered/Not Resolved]

NARRATIVE: CASE EVENT DATE: 201509
